FAERS Safety Report 12890603 (Version 2)
Quarter: 2016Q4

REPORT INFORMATION
  Report Type: Report from Study
  Country: None (occurrence: NL)
  Receive Date: 20161027
  Receipt Date: 20161114
  Transmission Date: 20170207
  Serious: Yes (Hospitalization)
  Sender: FDA-Public Use
  Company Number: NL-ABBVIE-16P-114-1765143-00

PATIENT
  Sex: Male
  Weight: 81 kg

DRUGS (1)
  1. DUODOPA [Suspect]
     Active Substance: CARBIDOPA\LEVODOPA
     Indication: PARKINSON^S DISEASE
     Dosage: MD: 9.0??CD: 4.0??ED: 2.2
     Route: 050
     Dates: start: 20151130

REACTIONS (1)
  - Pneumonia [Unknown]
